FAERS Safety Report 7120141-8 (Version None)
Quarter: 2010Q4

REPORT INFORMATION
  Report Type: 
  Country: None (occurrence: None)
  Receive Date: 20101123
  Receipt Date: 20101115
  Transmission Date: 20110411
  Serious: Yes (Other)
  Sender: FDA-Public Use
  Company Number: GB-BRACCO-000320

PATIENT
  Age: 50 Year
  Sex: Male

DRUGS (2)
  1. MULTIHANCE [Suspect]
     Indication: NUCLEAR MAGNETIC RESONANCE IMAGING
     Dosage: DRUG ADMINISTERED AT 15.32
     Dates: start: 20101112, end: 20101112
  2. CHEMOTHERAPEUTICS NOS [Concomitant]

REACTIONS (4)
  - ERYTHEMA [None]
  - FEELING ABNORMAL [None]
  - LARYNGEAL OEDEMA [None]
  - SWELLING [None]
